FAERS Safety Report 10561877 (Version 2)
Quarter: 2014Q4

REPORT INFORMATION
  Report Type: Other
  Country: IT (occurrence: IT)
  Receive Date: 20141104
  Receipt Date: 20141104
  Transmission Date: 20150529
  Serious: Yes (Hospitalization)
  Sender: FDA-Public Use
  Company Number: IT-SUN PHARMACEUTICAL INDUSTRIES LTD-2014SUN00697

PATIENT

DRUGS (4)
  1. OXALIPLATINO SUN 5 MG/ML, CONCENTRATO PER SOLUZIONE PER INFUSIONE [Suspect]
     Active Substance: OXALIPLATIN
     Indication: SMALL INTESTINE CARCINOMA METASTATIC
     Dosage: 150 MG, CYCLIC
     Route: 042
     Dates: start: 20140111, end: 20140111
  2. FLUOROURACIL-ACCORD HEALTHCARE [Suspect]
     Active Substance: FLUOROURACIL
     Indication: SMALL INTESTINE CARCINOMA METASTATIC
     Dosage: 720 MG BOLUS AND 2160MG CONTINUOUS INFUSION
     Route: 042
     Dates: start: 20140111, end: 20140112
  3. EMEND [Concomitant]
     Active Substance: APREPITANT
     Dosage: UNK
     Route: 048
     Dates: start: 20140111, end: 20140113
  4. CALCIUM LEVOFOLINATE-TEVA [Concomitant]
     Dosage: 180 MG, UNK
     Route: 042
     Dates: start: 20140111, end: 20140112

REACTIONS (4)
  - Ileus paralytic [Recovered/Resolved]
  - Constipation [Recovered/Resolved]
  - Vomiting [Recovered/Resolved]
  - Febrile neutropenia [Recovered/Resolved]

NARRATIVE: CASE EVENT DATE: 20140115
